FAERS Safety Report 13498716 (Version 1)
Quarter: 2017Q2

REPORT INFORMATION
  Report Type: Spontaneous
  Country: US (occurrence: US)
  Receive Date: 20170428
  Receipt Date: 20170428
  Transmission Date: 20170830
  Serious: Yes (Other)
  Sender: FDA-Public Use
  Company Number: None

PATIENT
  Age: 65 Year
  Sex: Female
  Weight: 56.25 kg

DRUGS (2)
  1. HRQAT [Suspect]
     Active Substance: HYDROQUINONE\TRETINOIN
     Indication: EPHELIDES
     Route: 061
     Dates: start: 20170104, end: 20170322
  2. HQRAT [Concomitant]

REACTIONS (1)
  - Squamous cell carcinoma [None]

NARRATIVE: CASE EVENT DATE: 20170410
